FAERS Safety Report 19414751 (Version 1)
Quarter: 2021Q2

REPORT INFORMATION
  Report Type: Other
  Country: RU (occurrence: RU)
  Receive Date: 20210614
  Receipt Date: 20210614
  Transmission Date: 20210717
  Serious: Yes (Death)
  Sender: FDA-Public Use
  Company Number: RU-ROCHE-2847617

PATIENT

DRUGS (4)
  1. COBIMETINIB. [Suspect]
     Active Substance: COBIMETINIB
     Indication: MALIGNANT MELANOMA
     Route: 065
  2. DABRAFENIB [Suspect]
     Active Substance: DABRAFENIB
     Indication: MALIGNANT MELANOMA
     Route: 065
  3. VEMURAFENIB. [Suspect]
     Active Substance: VEMURAFENIB
     Indication: MALIGNANT MELANOMA
     Route: 065
  4. TRAMETINIB [Suspect]
     Active Substance: TRAMETINIB
     Indication: MALIGNANT MELANOMA
     Route: 065

REACTIONS (5)
  - Dry skin [Unknown]
  - Rash [Unknown]
  - Fatigue [Unknown]
  - Cerebrovascular accident [Fatal]
  - Pyrexia [Unknown]
